FAERS Safety Report 14544561 (Version 3)
Quarter: 2018Q2

REPORT INFORMATION
  Report Type: Spontaneous
  Country: JP (occurrence: JP)
  Receive Date: 20180217
  Receipt Date: 20180617
  Transmission Date: 20180711
  Serious: Yes (Death, Other)
  Sender: FDA-Public Use
  Company Number: JP-AMGEN-JPNSP2018022610

PATIENT
  Age: 83 Year
  Sex: Male
  Weight: 51 kg

DRUGS (14)
  1. LYRICA [Concomitant]
     Active Substance: PREGABALIN
     Indication: PRODUCT USED FOR UNKNOWN INDICATION
     Dosage: 75 MG, TID
     Route: 048
     Dates: start: 20140917
  2. LYRICA [Concomitant]
     Active Substance: PREGABALIN
     Dosage: 75 MG, TID
     Route: 048
     Dates: start: 20140917, end: 20160505
  3. PROMAC D [Concomitant]
     Active Substance: POLAPREZINC
     Indication: PRODUCT USED FOR UNKNOWN INDICATION
     Dosage: 75 MG, BID
     Route: 048
     Dates: start: 20151208, end: 20160308
  4. TAXOTERE [Concomitant]
     Active Substance: DOCETAXEL
     Indication: PRODUCT USED FOR UNKNOWN INDICATION
     Dosage: 40 MG, QD
     Route: 042
     Dates: start: 20160209
  5. RIZE [Concomitant]
     Active Substance: CLOTIAZEPAM
     Indication: PRODUCT USED FOR UNKNOWN INDICATION
     Dosage: 5 MG, BID
     Route: 048
     Dates: start: 20141014, end: 20160528
  6. ALFAROL [Concomitant]
     Active Substance: ALFACALCIDOL
     Indication: PRODUCT USED FOR UNKNOWN INDICATION
     Dosage: 0.5 MUG, QD
     Route: 048
     Dates: start: 20141007, end: 20160308
  7. TAXOTERE [Concomitant]
     Active Substance: DOCETAXEL
     Dosage: 40 MG, QD
     Route: 042
     Dates: start: 20160209, end: 20160324
  8. MAGLAX [Concomitant]
     Active Substance: MAGNESIUM OXIDE
     Indication: PRODUCT USED FOR UNKNOWN INDICATION
     Dosage: 500 MG, TID
     Route: 048
     Dates: start: 20150428, end: 20160528
  9. LANSOPRAZOLE TOWA [Concomitant]
     Active Substance: LANSOPRAZOLE
     Indication: PRODUCT USED FOR UNKNOWN INDICATION
     Dosage: 15 MG, QD
     Route: 048
     Dates: start: 20160216, end: 20160528
  10. LENDORMIN DAINIPPO [Concomitant]
     Active Substance: BROTIZOLAM
     Indication: PRODUCT USED FOR UNKNOWN INDICATION
     Dosage: 0.25 MG, QD
     Route: 048
     Dates: start: 20141014, end: 20160528
  11. PREDONINE [Concomitant]
     Active Substance: PREDNISOLONE
     Indication: PRODUCT USED FOR UNKNOWN INDICATION
     Dosage: 10 MG, QD
     Route: 048
     Dates: start: 20160112, end: 20160528
  12. DENOTAS [Concomitant]
     Active Substance: CALCIUM CARBONATE\CHOLECALCIFEROL\MAGNESIUM CARBONATE
     Indication: PRODUCT USED FOR UNKNOWN INDICATION
     Dosage: 2 DF, QD
     Route: 048
     Dates: start: 20140917, end: 20160308
  13. RANMARK [Suspect]
     Active Substance: DENOSUMAB
     Indication: METASTASES TO BONE
     Dosage: 120 MG, UNK
     Route: 058
     Dates: start: 201207, end: 20160112
  14. BIOFERMIN [Concomitant]
     Active Substance: BACILLUS SUBTILIS\LACTOBACILLUS ACIDOPHILUS\STREPTOCOCCUS FAECAIS
     Indication: PRODUCT USED FOR UNKNOWN INDICATION
     Dosage: 12 MG, TID
     Route: 048
     Dates: start: 20160210, end: 20160528

REACTIONS (3)
  - Osteonecrosis of jaw [Not Recovered/Not Resolved]
  - Death [Fatal]
  - Tooth disorder [Unknown]

NARRATIVE: CASE EVENT DATE: 201601
